FAERS Safety Report 19746203 (Version 1)
Quarter: 2021Q3

REPORT INFORMATION
  Report Type: Report from Study
  Country: BR (occurrence: BR)
  Receive Date: 20210825
  Receipt Date: 20210825
  Transmission Date: 20211014
  Serious: Yes (Other)
  Sender: FDA-Public Use
  Company Number: BR-TAKEDA-2019TUS007245

PATIENT
  Age: 32 Year
  Sex: Female

DRUGS (2)
  1. VEDOLIZUMAB [Suspect]
     Active Substance: VEDOLIZUMAB
     Indication: CROHN^S DISEASE
     Dosage: 300 MILLIGRAM
     Route: 042
     Dates: start: 20180613
  2. AZATHIOPRINE. [Concomitant]
     Active Substance: AZATHIOPRINE
     Indication: CROHN^S DISEASE
     Dosage: UNK

REACTIONS (6)
  - Paralysis [Unknown]
  - Pain [Unknown]
  - Haemorrhoids [Recovered/Resolved]
  - Off label use [Unknown]
  - Adverse drug reaction [Unknown]
  - Headache [Unknown]

NARRATIVE: CASE EVENT DATE: 201901
